FAERS Safety Report 18929575 (Version 2)
Quarter: 2021Q2

REPORT INFORMATION
  Report Type: Report from Study
  Country: US (occurrence: US)
  Receive Date: 20210223
  Receipt Date: 20210402
  Transmission Date: 20210717
  Serious: Yes (Death, Other)
  Sender: FDA-Public Use
  Company Number: US-ASTRAZENECA-2021A071129

PATIENT
  Age: 64 Year
  Sex: Male
  Weight: 79.5 kg

DRUGS (7)
  1. GLYCOPYRROLATE. [Concomitant]
     Active Substance: GLYCOPYRROLATE
     Indication: SECRETION DISCHARGE
     Dosage: THE CATHETER EVERY 4 HOURS AS NEEDED0.5ML AS REQUIRED
  2. HALDOL [Concomitant]
     Active Substance: HALOPERIDOL
     Indication: AGITATION
     Dosage: 0.1ML IV EVERY 8 HOURS AS NEEDED
     Route: 042
  3. DEXAMETHASONE. [Concomitant]
     Active Substance: DEXAMETHASONE
     Route: 048
  4. CALQUENCE [Suspect]
     Active Substance: ACALABRUTINIB
     Route: 048
     Dates: start: 20201012
  5. CALQUENCE [Suspect]
     Active Substance: ACALABRUTINIB
     Dosage: 100 MG
     Route: 048
     Dates: start: 202009, end: 20210201
  6. ATIVAN [Concomitant]
     Active Substance: LORAZEPAM
     Indication: ANXIETY
     Route: 048
  7. MORPHINE [Concomitant]
     Active Substance: MORPHINE
     Indication: PAIN
     Dosage: INTO CATHETER EVERY 151.0ML AS REQUIRED

REACTIONS (5)
  - Cardiac disorder [Unknown]
  - Death [Fatal]
  - Prostate cancer [Unknown]
  - Thrombophlebitis superficial [Unknown]
  - Asthma [Unknown]
